FAERS Safety Report 17763747 (Version 1)
Quarter: 2020Q2

REPORT INFORMATION
  Report Type: Spontaneous
  Country: FR (occurrence: FR)
  Receive Date: 20200510
  Receipt Date: 20200510
  Transmission Date: 20200714
  Serious: Yes (Other)
  Sender: FDA-Public Use
  Company Number: FR-CADILA HEALTHCARE LIMITED-FR-ZYDUS-025548

PATIENT

DRUGS (21)
  1. OLANZAPINE. [Suspect]
     Active Substance: OLANZAPINE
     Indication: PRODUCT USED FOR UNKNOWN INDICATION
     Dosage: 20 MILLIGRAM,(INTERVAL :1 DAYS)
     Route: 048
     Dates: start: 20180619, end: 20180629
  2. TERCIAN [Suspect]
     Active Substance: CYAMEMAZINE
     Indication: PRODUCT USED FOR UNKNOWN INDICATION
     Dosage: 240,(INTERVAL :1 DAYS)
     Route: 048
     Dates: start: 20180509, end: 20180520
  3. CLOZAPINE. [Suspect]
     Active Substance: CLOZAPINE
     Indication: PRODUCT USED FOR UNKNOWN INDICATION
     Dosage: 600 MILLIGRAM,(INTERVAL :1 DAYS)
     Route: 048
     Dates: start: 20180721
  4. PRAZEPAM [Suspect]
     Active Substance: PRAZEPAM
     Indication: PRODUCT USED FOR UNKNOWN INDICATION
     Dosage: 30 MILLIGRAM,(INTERVAL :1 DAYS)
     Route: 048
     Dates: start: 20180507, end: 20180602
  5. LANSOYL [Concomitant]
     Active Substance: MINERAL OIL
  6. PARACETAMOL [Concomitant]
     Active Substance: ACETAMINOPHEN
  7. DIFFU K [Concomitant]
     Active Substance: POTASSIUM CHLORIDE
  8. THERALENE [Suspect]
     Active Substance: TRIMEPRAZINE
     Indication: PRODUCT USED FOR UNKNOWN INDICATION
     Dosage: 15,(INTERVAL :1 DAYS)
     Route: 048
     Dates: start: 20180507, end: 20180614
  9. HALDOL [Suspect]
     Active Substance: HALOPERIDOL
     Indication: PRODUCT USED FOR UNKNOWN INDICATION
     Dosage: 22 MILLIGRAM,(INTERVAL :1 DAYS)
     Route: 048
     Dates: start: 20180523, end: 20180605
  10. ABILIFY [Suspect]
     Active Substance: ARIPIPRAZOLE
     Indication: PRODUCT USED FOR UNKNOWN INDICATION
     Dosage: 15 MILLIGRAM,(INTERVAL :1 DAYS)
     Route: 048
     Dates: start: 20180607, end: 20180619
  11. NORMACOL [Concomitant]
     Active Substance: HERBALS\KARAYA GUM
  12. MACROGOL 4000 [Concomitant]
     Active Substance: POLYETHYLENE GLYCOL 4000
  13. LEPTICUR [Suspect]
     Active Substance: TROPATEPINE HYDROCHLORIDE
     Indication: PRODUCT USED FOR UNKNOWN INDICATION
     Dosage: 20 MILLIGRAM,(INTERVAL :1 DAYS)
     Route: 048
     Dates: start: 20180509, end: 20180607
  14. RISPERIDONE. [Suspect]
     Active Substance: RISPERIDONE
     Indication: PRODUCT USED FOR UNKNOWN INDICATION
     Dosage: 8 MILLIGRAM,(INTERVAL :1 DAYS)
     Route: 048
     Dates: start: 20180509, end: 20180523
  15. LORMETAZEPAM [Suspect]
     Active Substance: LORMETAZEPAM
     Indication: PRODUCT USED FOR UNKNOWN INDICATION
     Dosage: 2 MILLIGRAM,(INTERVAL :1 DAYS)
     Route: 048
     Dates: start: 20180529, end: 20180702
  16. SULFARLEM S [Concomitant]
     Active Substance: ANETHOLTRITHION
  17. FUNGIZONE [Concomitant]
     Active Substance: AMPHOTERICIN B
  18. ZOLPIDEM [Suspect]
     Active Substance: ZOLPIDEM TARTRATE
     Indication: PRODUCT USED FOR UNKNOWN INDICATION
     Dosage: 10 MILLIGRAM,(INTERVAL :1 DAYS)
     Route: 048
     Dates: start: 20180509, end: 20180529
  19. VALIUM [Suspect]
     Active Substance: DIAZEPAM
     Indication: PRODUCT USED FOR UNKNOWN INDICATION
     Dosage: 90,(INTERVAL :1 DAYS)
     Route: 048
     Dates: start: 20180602
  20. GLUCIDION [Concomitant]
     Active Substance: GLUCOSE, LIQUID\POTASSIUM CHLORIDE\SODIUM CHLORIDE
  21. ZYPREXA [Suspect]
     Active Substance: OLANZAPINE
     Indication: PRODUCT USED FOR UNKNOWN INDICATION
     Dosage: 1 MILLIGRAM,(INTERVAL :1 DAYS)
     Route: 030
     Dates: start: 20180529, end: 20180530

REACTIONS (2)
  - Condition aggravated [Not Recovered/Not Resolved]
  - Abnormal loss of weight [Not Recovered/Not Resolved]

NARRATIVE: CASE EVENT DATE: 20180603
